FAERS Safety Report 20009529 (Version 1)
Quarter: 2021Q4

REPORT INFORMATION
  Report Type: Spontaneous
  Country: US (occurrence: US)
  Receive Date: 20211028
  Receipt Date: 20211028
  Transmission Date: 20220303
  Serious: No
  Sender: FDA-Public Use
  Company Number: None

PATIENT
  Age: 89 Year
  Sex: Female
  Weight: 72 kg

DRUGS (1)
  1. ISOVUE [Suspect]
     Active Substance: IOPAMIDOL
     Indication: Imaging procedure
     Dates: start: 20210916, end: 20210916

REACTIONS (2)
  - Anticoagulation drug level increased [None]
  - Laboratory test interference [None]

NARRATIVE: CASE EVENT DATE: 20210916
